FAERS Safety Report 4662741-0 (Version None)
Quarter: 2005Q2

REPORT INFORMATION
  Report Type: 
  Country: None (occurrence: None)
  Receive Date: 20050516
  Receipt Date: 20050512
  Transmission Date: 20051028
  Serious: Yes (Hospitalization)
  Sender: FDA-Public Use
  Company Number: FR-GLAXOSMITHKLINE-B0380944A

PATIENT
  Age: 89 Year
  Sex: Male
  Weight: 54 kg

DRUGS (6)
  1. AUGMENTIN '125' [Suspect]
     Dosage: 1G THREE TIMES PER DAY
     Route: 042
     Dates: start: 20050413, end: 20050419
  2. OFLOCET [Concomitant]
     Dosage: 200MG TWICE PER DAY
     Route: 048
     Dates: start: 20050413, end: 20050415
  3. HYZAAR [Concomitant]
     Route: 065
  4. DIGOXIN [Concomitant]
     Route: 065
  5. PLAVIX [Concomitant]
     Route: 065
  6. TARDYFERON B9 [Concomitant]
     Route: 065

REACTIONS (7)
  - BLOOD AMYLASE INCREASED [None]
  - BLOOD CREATININE INCREASED [None]
  - HEPATITIS CHOLESTATIC [None]
  - JAUNDICE [None]
  - LIPASE INCREASED [None]
  - LIVER FUNCTION TEST ABNORMAL [None]
  - RENAL FAILURE ACUTE [None]
